FAERS Safety Report 4659076-9 (Version None)
Quarter: 2005Q2

REPORT INFORMATION
  Report Type: 
  Country: None (occurrence: None)
  Receive Date: 20050511
  Receipt Date: 20050503
  Transmission Date: 20051028
  Serious: Yes (Other)
  Sender: FDA-Public Use
  Company Number: PHBS2005BE06303

PATIENT
  Sex: Male

DRUGS (1)
  1. ZOMETA [Suspect]
     Route: 042

REACTIONS (6)
  - ABSCESS JAW [None]
  - ASEPTIC NECROSIS BONE [None]
  - INFECTION [None]
  - OSTEOMYELITIS [None]
  - OSTEONECROSIS [None]
  - SUPERINFECTION [None]
